FAERS Safety Report 4309435-9 (Version None)
Quarter: 2004Q1

REPORT INFORMATION
  Report Type: 
  Country: None (occurrence: None)
  Receive Date: 20040301
  Receipt Date: 20040220
  Transmission Date: 20041129
  Serious: Yes (Other)
  Sender: FDA-Public Use
  Company Number: 2004-02-1454

PATIENT
  Age: 56 Year
  Sex: Male

DRUGS (2)
  1. RINDERON (BETAMETHASONE SODIUM PHOSPHATE) OPHTHALMIC SOLUTION ^LIKE CE [Suspect]
     Dosage: 0.1% EYE
     Dates: start: 19990801
  2. OFLOXACIN OPHTHALMIC SOLUTION [Concomitant]

REACTIONS (4)
  - BACILLUS INFECTION [None]
  - EYE INFECTION FUNGAL [None]
  - OPPORTUNISTIC INFECTION [None]
  - POST PROCEDURAL COMPLICATION [None]
